FAERS Safety Report 14790512 (Version 1)
Quarter: 2018Q2

REPORT INFORMATION
  Report Type: Spontaneous
  Country: US (occurrence: US)
  Receive Date: 20180423
  Receipt Date: 20180423
  Transmission Date: 20180711
  Serious: Yes (Hospitalization)
  Sender: FDA-Public Use
  Company Number: US-MYLANLABS-2018M1024771

PATIENT
  Age: 55 Year
  Sex: Male

DRUGS (6)
  1. VEPESID [Suspect]
     Active Substance: ETOPOSIDE
     Indication: PLASMA CELL MYELOMA
     Dosage: FOUR DAYS
     Route: 041
  2. ADRIAMYCIN [Suspect]
     Active Substance: DOXORUBICIN HYDROCHLORIDE
     Indication: PLASMA CELL MYELOMA
     Dosage: FOUR DAYS
     Route: 041
  3. CYTOXAN [Suspect]
     Active Substance: CYCLOPHOSPHAMIDE
     Indication: PLASMA CELL MYELOMA
     Dosage: FOUR DAYS
     Route: 041
  4. PLATINOL [Suspect]
     Active Substance: CISPLATIN
     Indication: PLASMA CELL MYELOMA
     Dosage: FOUR DAYS
     Route: 041
  5. DEXAMETHASONE. [Suspect]
     Active Substance: DEXAMETHASONE
     Indication: PLASMA CELL MYELOMA
     Route: 048
  6. LASIX [Concomitant]
     Active Substance: FUROSEMIDE
     Indication: CARDIAC FAILURE ACUTE
     Route: 042

REACTIONS (3)
  - Febrile neutropenia [Recovered/Resolved]
  - Alpha haemolytic streptococcal infection [Recovered/Resolved]
  - Left ventricular dysfunction [Recovered/Resolved]
